FAERS Safety Report 9048345 (Version 1)
Quarter: 2013Q1

REPORT INFORMATION
  Report Type: Spontaneous
  Country: US (occurrence: US)
  Receive Date: 20130204
  Receipt Date: 20130204
  Transmission Date: 20140127
  Serious: No
  Sender: FDA-Public Use
  Company Number: US-AMGEN-USASP2013000175

PATIENT
  Age: 62 Year
  Sex: Female
  Weight: 77.1 kg

DRUGS (7)
  1. ENBREL [Suspect]
     Indication: RHEUMATOID ARTHRITIS
     Dosage: 50 MG, QWK
     Route: 058
     Dates: start: 20091006, end: 20121019
  2. VOLTAREN                           /00372301/ [Concomitant]
     Dosage: 1 %, PRN
     Route: 061
  3. AMITRIPTYLINE [Concomitant]
     Dosage: 50 MG, QHS
     Route: 048
  4. CLONAZEPAM [Concomitant]
     Dosage: 0.5 MG, PRN
     Route: 048
  5. CITALOPRAM [Concomitant]
     Dosage: 20 MG, PRN
     Route: 048
     Dates: end: 20121029
  6. CYMBALTA [Concomitant]
     Dosage: 625 MG, PRN
     Route: 048
  7. WELCHOL [Concomitant]
     Dosage: 625 MG, PRN
     Route: 048
     Dates: end: 20121029

REACTIONS (2)
  - Tooth erosion [Not Recovered/Not Resolved]
  - Injection site pain [Not Recovered/Not Resolved]
